FAERS Safety Report 25249579 (Version 2)
Quarter: 2025Q2

REPORT INFORMATION
  Report Type: Spontaneous
  Country: MX (occurrence: MX)
  Receive Date: 20250429
  Receipt Date: 20250513
  Transmission Date: 20250716
  Serious: Yes (Other)
  Sender: ALKEM
  Company Number: None

PATIENT
  Age: 29 Year
  Sex: Female

DRUGS (13)
  1. MYCOPHENOLATE MOFETIL [Suspect]
     Active Substance: MYCOPHENOLATE MOFETIL
     Indication: Systemic lupus erythematosus
     Dosage: 1000 MILLIGRAM, BID (EVERY 12 HOUR)
     Route: 048
  2. PREDNISONE [Suspect]
     Active Substance: PREDNISONE
     Indication: Systemic lupus erythematosus
     Dosage: 5 MILLIGRAM, QD (EVERY 1 DAY)
     Route: 048
  3. BEDAQUILINE [Concomitant]
     Active Substance: BEDAQUILINE
     Indication: Antibiotic therapy
     Dosage: 400 MILLIGRAM, QD (DAILY)
     Route: 048
  4. FUROSEMIDE [Concomitant]
     Active Substance: FUROSEMIDE
     Indication: Lupus myocarditis
     Dosage: 40 MILLIGRAM, QD (EVERY 1 DAY)
     Route: 048
  5. FUROSEMIDE [Concomitant]
     Active Substance: FUROSEMIDE
     Indication: Left ventricular failure
  6. IMIPENEM [Concomitant]
     Active Substance: IMIPENEM
     Indication: Antibiotic therapy
     Dosage: 1 GRAM, BID (TWICE A DAY)
     Route: 042
  7. LINEZOLID [Concomitant]
     Active Substance: LINEZOLID
     Indication: Antibiotic therapy
     Dosage: 600 MILLIGRAM, QD (DAILY)
     Route: 048
  8. METOPROLOL TARTRATE [Concomitant]
     Active Substance: METOPROLOL TARTRATE
     Indication: Lupus myocarditis
     Dosage: 100 MILLIGRAM, BID (EVERY 12 HOUR)
     Route: 048
  9. METOPROLOL TARTRATE [Concomitant]
     Active Substance: METOPROLOL TARTRATE
     Indication: Left ventricular failure
  10. MOXIFLOXACIN [Concomitant]
     Active Substance: MOXIFLOXACIN
     Indication: Antibiotic therapy
     Dosage: 400 MILLIGRAM, QD (DAILY)
     Route: 048
  11. SPIRONOLACTONE [Concomitant]
     Active Substance: SPIRONOLACTONE
     Indication: Lupus myocarditis
     Dosage: 25 MILLIGRAM, QD (EVERY 1 DAY)
     Route: 048
  12. SPIRONOLACTONE [Concomitant]
     Active Substance: SPIRONOLACTONE
     Indication: Left ventricular failure
  13. TIGECYCLINE [Concomitant]
     Active Substance: TIGECYCLINE
     Indication: Antibiotic therapy
     Dosage: 50 MILLIGRAM, BID (TWICE A DAY)
     Route: 042

REACTIONS (2)
  - Dermatosis [Recovering/Resolving]
  - Mycobacterium haemophilum infection [Recovering/Resolving]
